FAERS Safety Report 5363194-X (Version None)
Quarter: 2007Q2

REPORT INFORMATION
  Report Type: 
  Country: None (occurrence: None)
  Receive Date: 20070620
  Receipt Date: 20070611
  Transmission Date: 20071010
  Serious: Yes (Hospitalization)
  Sender: FDA-Public Use
  Company Number: PHRM2007FR01633

PATIENT
  Age: 52 Year
  Sex: Male

DRUGS (3)
  1. LAMISIL [Suspect]
     Indication: INTERTRIGO
     Route: 061
     Dates: start: 20070420, end: 20070502
  2. PRETERAX [Concomitant]
     Route: 048
  3. LAMISIL [Suspect]
     Route: 048
     Dates: start: 20070420, end: 20070502

REACTIONS (4)
  - EOSINOPHILIA [None]
  - EPIDERMAL NECROSIS [None]
  - RASH [None]
  - RASH MACULO-PAPULAR [None]
